FAERS Safety Report 18808676 (Version 2)
Quarter: 2021Q1

REPORT INFORMATION
  Report Type: Spontaneous
  Country: PT (occurrence: PT)
  Receive Date: 20210129
  Receipt Date: 20210202
  Transmission Date: 20210419
  Serious: Yes (Death, Hospitalization)
  Sender: FDA-Public Use
  Company Number: PT-ROCHE-2757171

PATIENT
  Age: 74 Year
  Sex: Male

DRUGS (10)
  1. TECENTRIQ [Suspect]
     Active Substance: ATEZOLIZUMAB
     Indication: TRANSITIONAL CELL CARCINOMA METASTATIC
     Dosage: ON AN UNKNOWN DATE IN /MAR/2020, HE RECEIVED LAST ADMINISTRATION DOSE OF IV ATEZOLIZUMAB.
     Route: 042
     Dates: start: 201908
  2. BISOPROLOL [Concomitant]
     Active Substance: BISOPROLOL
  3. VILDAGLIPTIN [Concomitant]
     Active Substance: VILDAGLIPTIN
  4. SIMVASTATIN. [Concomitant]
     Active Substance: SIMVASTATIN
  5. CLOPIDOGREL [Concomitant]
     Active Substance: CLOPIDOGREL BISULFATE
  6. GLICLAZIDE [Concomitant]
     Active Substance: GLICLAZIDE
  7. METFORMIN [Concomitant]
     Active Substance: METFORMIN HYDROCHLORIDE
  8. ZOLEDRONIC ACID [Suspect]
     Active Substance: ZOLEDRONIC ACID
     Indication: TRANSITIONAL CELL CARCINOMA METASTATIC
     Route: 065
  9. IRBESARTAN. [Concomitant]
     Active Substance: IRBESARTAN
  10. AMLODIPINE [Concomitant]
     Active Substance: AMLODIPINE BESYLATE

REACTIONS (10)
  - Pruritus [Unknown]
  - Intentional product use issue [Unknown]
  - Death [Fatal]
  - Pyelonephritis [Unknown]
  - Diarrhoea [Unknown]
  - Cardiac failure chronic [Unknown]
  - Off label use [Unknown]
  - Tumour thrombosis [Unknown]
  - Haematuria [Recovered/Resolved]
  - Sepsis [Unknown]

NARRATIVE: CASE EVENT DATE: 201908
